FAERS Safety Report 5880348-4 (Version None)
Quarter: 2008Q3

REPORT INFORMATION
  Report Type: 
  Country: None (occurrence: None)
  Receive Date: 20080912
  Receipt Date: 20080905
  Transmission Date: 20090109
  Serious: Yes (Hospitalization)
  Sender: FDA-Public Use
  Company Number: AU-PFIZER INC-2008075307

PATIENT
  Age: 68 Year
  Sex: Female

DRUGS (11)
  1. DIFLUCAN [Suspect]
     Indication: ORAL CANDIDIASIS
     Route: 048
  2. SUCRALFATE [Concomitant]
  3. ZYLOPRIM [Concomitant]
  4. LANSOPRAZOLE [Concomitant]
  5. ALDACTONE [Concomitant]
  6. EFFEXOR [Concomitant]
  7. MOBIC [Concomitant]
  8. PROCHLORPERAZINE [Concomitant]
  9. ACETAMINOPHEN W/ CODEINE [Concomitant]
  10. LASIX [Concomitant]
  11. MORPHINE [Concomitant]

REACTIONS (6)
  - DISORIENTATION [None]
  - DRY MOUTH [None]
  - DYSPNOEA [None]
  - FATIGUE [None]
  - GASTRIC DISORDER [None]
  - MEMORY IMPAIRMENT [None]
